FAERS Safety Report 10389979 (Version 2)
Quarter: 2014Q3

REPORT INFORMATION
  Report Type: Spontaneous
  Country: US (occurrence: None)
  Receive Date: 20140813
  Receipt Date: 20140829
  Transmission Date: 20150326
  Serious: Yes (Death, Other)
  Sender: FDA-Public Use
  Company Number: 2013US003547

PATIENT
  Age: 39 Year
  Sex: Male

DRUGS (1)
  1. ICLUSIG [Suspect]
     Active Substance: PONATINIB
     Indication: PRODUCT USED FOR UNKNOWN INDICATION
     Route: 048
     Dates: start: 20120611

REACTIONS (7)
  - Hyperkalaemia [None]
  - Multi-organ failure [None]
  - ABO incompatibility [None]
  - Cardiac arrest [None]
  - Death [None]
  - Blast cell crisis [None]
  - Pancytopenia [None]
